FAERS Safety Report 6287431-2 (Version None)
Quarter: 2009Q3

REPORT INFORMATION
  Report Type: 
  Country: None (occurrence: None)
  Receive Date: 20090728
  Receipt Date: 20090721
  Transmission Date: 20100115
  Serious: Yes (Hospitalization)
  Sender: FDA-Public Use
  Company Number: FR-AMGEN-UK351515

PATIENT
  Sex: Female

DRUGS (2)
  1. ARANESP [Suspect]
     Route: 058
     Dates: start: 20090515
  2. SALINE MIXTURE [Concomitant]
     Route: 065

REACTIONS (1)
  - ACUTE PULMONARY OEDEMA [None]
